FAERS Safety Report 8992316 (Version 7)
Quarter: 2013Q2

REPORT INFORMATION
  Report Type: Report from Study
  Country: US (occurrence: US)
  Receive Date: 20121231
  Receipt Date: 20130405
  Transmission Date: 20140414
  Serious: Yes (Other)
  Sender: FDA-Public Use
  Company Number: US-VERTEX PHARMACEUTICALS INC.-2012-026692

PATIENT
  Age: 55 Year
  Sex: Male
  Weight: 59 kg

DRUGS (5)
  1. VX-950 (TELAPREVIR) [Suspect]
     Indication: HEPATITIS C
     Dosage: 750 MG, TID
     Route: 048
     Dates: start: 20121207, end: 20130301
  2. RIBAVIRIN [Suspect]
     Indication: HEPATITIS C
     Dosage: 600 MG, BID
     Route: 048
     Dates: start: 20121207, end: 20130123
  3. RIBAVIRIN [Suspect]
     Dosage: 200 MG,BID
     Route: 048
     Dates: start: 201301
  4. RIBAVIRIN [Suspect]
     Dosage: 400 MG, BID
     Route: 048
  5. PEGASYS [Suspect]
     Indication: HEPATITIS C
     Dosage: 180 ?G, QW
     Route: 058
     Dates: start: 20121207

REACTIONS (10)
  - White blood cell count decreased [Not Recovered/Not Resolved]
  - Photophobia [Not Recovered/Not Resolved]
  - Insomnia [Not Recovered/Not Resolved]
  - Decreased appetite [Recovered/Resolved]
  - Weight decreased [Not Recovered/Not Resolved]
  - Foreign body in eye [Recovered/Resolved]
  - Dry skin [Not Recovered/Not Resolved]
  - Red blood cell count decreased [Not Recovered/Not Resolved]
  - Platelet count decreased [Not Recovered/Not Resolved]
  - Pruritus [Not Recovered/Not Resolved]
